FAERS Safety Report 16957876 (Version 1)
Quarter: 2019Q4

REPORT INFORMATION
  Report Type: Spontaneous
  Country: US (occurrence: US)
  Receive Date: 20191024
  Receipt Date: 20191024
  Transmission Date: 20200122
  Serious: No
  Sender: FDA-Public Use
  Company Number: US-SA-2019SA295561

PATIENT
  Age: 64 Year
  Sex: Male

DRUGS (1)
  1. PRALUENT [Suspect]
     Active Substance: ALIROCUMAB
     Dosage: 75 MG
     Dates: start: 201910

REACTIONS (4)
  - Pain in extremity [Unknown]
  - Dysstasia [Unknown]
  - Motor dysfunction [Unknown]
  - Peripheral swelling [Unknown]

NARRATIVE: CASE EVENT DATE: 201910
